FAERS Safety Report 9739474 (Version 1)
Quarter: 2013Q4

REPORT INFORMATION
  Report Type: Spontaneous
  Country: NL (occurrence: NL)
  Receive Date: 20131209
  Receipt Date: 20131209
  Transmission Date: 20140711
  Serious: Yes (Other)
  Sender: FDA-Public Use
  Company Number: NL-TEVA-447782ISR

PATIENT
  Age: 35 Year
  Sex: Female

DRUGS (2)
  1. CICLOSPORIN [Suspect]
     Route: 065
  2. ICODEXTRIN [Suspect]
     Route: 065

REACTIONS (2)
  - Sclerosing encapsulating peritonitis [Recovering/Resolving]
  - Pericarditis [Unknown]
